FAERS Safety Report 25289171 (Version 1)
Quarter: 2025Q2

REPORT INFORMATION
  Report Type: Spontaneous
  Country: GB (occurrence: GB)
  Receive Date: 20250509
  Receipt Date: 20250509
  Transmission Date: 20250717
  Serious: Yes (Other)
  Sender: BOEHRINGER INGELHEIM
  Company Number: GB-MHRA-TPP6810746C5561858YC1746781798341

PATIENT
  Age: 53 Year
  Sex: Female
  Weight: 103 kg

DRUGS (13)
  1. EMPAGLIFLOZIN [Suspect]
     Active Substance: EMPAGLIFLOZIN
     Indication: Diabetes mellitus
     Dosage: FORM OF ADMIN:TPP YC - PLEASE RECLASSIFY?TAKE ONE TABLET ONCE A DAY TO HELP CONTROL DIAB...?FORM OF ADMIN: TPP YC - PLEASE RECLASSIFY
     Dates: start: 20250502
  2. AMOXICILLIN [Concomitant]
     Active Substance: AMOXICILLIN
     Indication: Ill-defined disorder
     Dosage: ADULT DOSE: TAKE ONE CAPSULE THREE TIMES A DAY ...?FORM OF ADMIN: TPP YC - PLEASE RECLASSIFY
     Dates: start: 20250404, end: 20250411
  3. PREDNISOLONE [Concomitant]
     Active Substance: PREDNISOLONE
     Indication: Ill-defined disorder
     Dates: start: 20250409, end: 20250414
  4. CLARITHROMYCIN [Concomitant]
     Active Substance: CLARITHROMYCIN
     Indication: Ill-defined disorder
     Dosage: ADULT DOSE: TAKE ONE TABLET TWICE A DAY FOR FIV...?FORM OF ADMIN: TPP YC - PLEASE RECLASSIFY
     Dates: start: 20250409, end: 20250414
  5. IBUPROFEN [Concomitant]
     Active Substance: IBUPROFEN
     Indication: Ill-defined disorder
     Dates: start: 20230216, end: 20250318
  6. OMEPRAZOLE [Concomitant]
     Active Substance: OMEPRAZOLE
     Indication: Ill-defined disorder
     Dosage: FORM OF ADMIN: TPP YC - PLEASE RECLASSIFY
     Dates: start: 20230216
  7. RAMIPRIL [Concomitant]
     Active Substance: RAMIPRIL
     Indication: Ill-defined disorder
     Dosage: FORM OF ADMIN: TPP YC - PLEASE RECLASSIFY
     Dates: start: 20230216
  8. ALBUTEROL [Concomitant]
     Active Substance: ALBUTEROL
     Indication: Ill-defined disorder
  9. CLOBETASOL [Concomitant]
     Active Substance: CLOBETASOL
     Indication: Ill-defined disorder
     Dosage: FORM OF ADMIN: TPP YC - PLEASE RECLASSIFY
     Dates: start: 20231025
  10. PRAVASTATIN [Concomitant]
     Active Substance: PRAVASTATIN
     Indication: Ill-defined disorder
     Dosage: TAKE ONE TABLET AT NIGHT TO HELP LOWER CHOLESTEROL?FORM OF ADMIN: TPP YC - PLEASE RECLASSIFY
     Dates: start: 20240226, end: 20250318
  11. ESTRIOL [Concomitant]
     Active Substance: ESTRIOL
     Indication: Ill-defined disorder
  12. BECLOMETHASONE\FORMOTEROL [Concomitant]
     Active Substance: BECLOMETHASONE\FORMOTEROL
     Indication: Ill-defined disorder
     Dosage: USE 2 PUFFS TWICE DAILY?FORM OF ADMIN: TPP YC - PLEASE RECLASSIFY
     Dates: start: 20240905
  13. ATORVASTATIN [Concomitant]
     Active Substance: ATORVASTATIN
     Indication: Ill-defined disorder
     Dosage: FORM OF ADMIN: TPP YC - PLEASE RECLASSIFY
     Dates: start: 20241010, end: 20250318

REACTIONS (1)
  - Dyspnoea [Recovered/Resolved]

NARRATIVE: CASE EVENT DATE: 20250509
